FAERS Safety Report 24967702 (Version 1)
Quarter: 2025Q1

REPORT INFORMATION
  Report Type: Spontaneous
  Country: CA (occurrence: CA)
  Receive Date: 20250214
  Receipt Date: 20250214
  Transmission Date: 20250408
  Serious: Yes (Other)
  Sender: INTERCEPT PHARMACEUTICALS
  Company Number: CA-ADVANZ PHARMA-202502000871

PATIENT
  Sex: Male
  Weight: 78 kg

DRUGS (2)
  1. OCALIVA [Suspect]
     Active Substance: OBETICHOLIC ACID
     Route: 048
     Dates: start: 20220113
  2. URSODIOL [Concomitant]
     Active Substance: URSODIOL
     Dates: start: 20210920

REACTIONS (1)
  - Hepatic fibrosis [Unknown]
